FAERS Safety Report 6100944-9 (Version None)
Quarter: 2009Q1

REPORT INFORMATION
  Report Type: 
  Country: None (occurrence: None)
  Receive Date: 20090226
  Receipt Date: 20090211
  Transmission Date: 20090719
  Serious: Yes (Other)
  Sender: FDA-Public Use
  Company Number: 2009169638

PATIENT
  Age: 37 Year
  Sex: Male

DRUGS (7)
  1. DALTEPARIN SODIUM [Suspect]
     Indication: EMBOLISM
     Dosage: 18000 L, 1X/DAY
  2. TACROLIMUS [Concomitant]
  3. MYCOPHENOLATE MOFETIL [Concomitant]
  4. PREDNISOINE (PREDNISONE) [Concomitant]
  5. BISOPROLOL (BISOPROLOL) [Concomitant]
  6. FUROSEMIDE [Concomitant]
  7. OMEPRAZOLE [Concomitant]

REACTIONS (1)
  - HYPERTRIGLYCERIDAEMIA [None]
